FAERS Safety Report 9256198 (Version 1)
Quarter: 2013Q2

REPORT INFORMATION
  Report Type: Spontaneous
  Country: US (occurrence: US)
  Receive Date: 20130425
  Receipt Date: 20130425
  Transmission Date: 20140414
  Serious: No
  Sender: FDA-Public Use
  Company Number: US-AMGEN-USASP2012042047

PATIENT
  Age: 41 Year
  Sex: Female

DRUGS (3)
  1. NEULASTA [Suspect]
     Indication: CHEMOTHERAPY
     Dosage: UNK UNK, Q2WK
     Dates: start: 20120622
  2. CYTOXAN [Concomitant]
     Dosage: UNK
     Dates: start: 201206
  3. ADRIAMYCIN [Concomitant]
     Dosage: UNK
     Dates: start: 201206

REACTIONS (5)
  - Rhinorrhoea [Recovering/Resolving]
  - Oropharyngeal pain [Recovering/Resolving]
  - Cough [Recovering/Resolving]
  - Flushing [Recovering/Resolving]
  - Hypersensitivity [Unknown]
